FAERS Safety Report 5336408-X (Version None)
Quarter: 2007Q2

REPORT INFORMATION
  Report Type: 
  Country: None (occurrence: None)
  Receive Date: 20070523
  Receipt Date: 20070511
  Transmission Date: 20071010
  Serious: Yes (Hospitalization)
  Sender: FDA-Public Use
  Company Number: 2007SP009191

PATIENT
  Age: 54 Year
  Sex: Female

DRUGS (4)
  1. VIRAFERON [Suspect]
     Indication: HEPATITIS C
     Dosage: SC
     Route: 058
     Dates: start: 20060315
  2. REBETOL [Suspect]
     Indication: HEPATITIS C
     Dosage: PO
     Route: 048
  3. EPREX [Concomitant]
  4. ANTIRETROVIRAL TREATMENT [Concomitant]

REACTIONS (4)
  - ANAEMIA [None]
  - CUTANEOUS VASCULITIS [None]
  - NEUTROPENIA [None]
  - POLYARTHRITIS [None]
